FAERS Safety Report 8111794 (Version 3)
Quarter: 2014Q2

REPORT INFORMATION
  Report Type: Spontaneous
  Country: US (occurrence: US)
  Receive Date: 20110829
  Receipt Date: 20140423
  Transmission Date: 20141212
  Serious: Yes (Life-Threatening, Hospitalization, Disabling, Other)
  Sender: FDA-Public Use
  Company Number: US-PURDUE-USA-2011-0074044

PATIENT
  Sex: Female

DRUGS (2)
  1. OXYCONTIN (NDA 22-272) [Suspect]
     Indication: DRUG ABUSE
     Dosage: UNKNOWN
     Route: 065
  2. METHAMPHETAMINE [Suspect]
     Indication: DRUG ABUSE
     Dosage: UNKNOWN
     Route: 065

REACTIONS (17)
  - Overdose [Unknown]
  - Polysubstance dependence [Unknown]
  - Substance abuse [Unknown]
  - Septic shock [Unknown]
  - Coma [Recovered/Resolved]
  - Cerebrovascular accident [Unknown]
  - Multi-organ failure [Unknown]
  - Infection [Unknown]
  - Aortic valve replacement [Unknown]
  - Leg amputation [Unknown]
  - Dental caries [Unknown]
  - Cyanosis [Unknown]
  - Respiratory arrest [Unknown]
  - Unresponsive to stimuli [Unknown]
  - Sternal fracture [Unknown]
  - Activities of daily living impaired [Unknown]
  - Memory impairment [Unknown]
